FAERS Safety Report 17556240 (Version 2)
Quarter: 2020Q2

REPORT INFORMATION
  Report Type: Spontaneous
  Country: US (occurrence: US)
  Receive Date: 20200318
  Receipt Date: 20200618
  Transmission Date: 20200713
  Serious: No
  Sender: FDA-Public Use
  Company Number: US-THERAPEUTICSMD-2020TMD00785

PATIENT
  Age: 6 Decade
  Sex: Female
  Weight: 58.96 kg

DRUGS (4)
  1. IMVEXXY [Suspect]
     Active Substance: ESTRADIOL
     Indication: SMEAR CERVIX ABNORMAL
     Dosage: 10 ?G, 2X/WEEK
     Dates: start: 20191224
  2. VALTREX [Concomitant]
     Active Substance: VALACYCLOVIR HYDROCHLORIDE
     Dosage: 500 DOSAGE UNITS, 1X/DAY
  3. IMVEXXY [Suspect]
     Active Substance: ESTRADIOL
     Indication: ATROPHIC VULVOVAGINITIS
     Dosage: 10 ?G, 1X/DAY FOR 2 WEEKS
     Dates: start: 20191210, end: 20191223
  4. IMVEXXY [Suspect]
     Active Substance: ESTRADIOL
     Dosage: 10 ?G, 2X/WEEK

REACTIONS (3)
  - Abdominal distension [Not Recovered/Not Resolved]
  - Pruritus [Recovered/Resolved]
  - Mood altered [Recovered/Resolved]

NARRATIVE: CASE EVENT DATE: 201912
